FAERS Safety Report 5582673-3 (Version None)
Quarter: 2008Q1

REPORT INFORMATION
  Report Type: 
  Country: None (occurrence: None)
  Receive Date: 20080107
  Receipt Date: 20080103
  Transmission Date: 20080703
  Serious: Yes (Other)
  Sender: FDA-Public Use
  Company Number: TH-JNJFOC-20071109388

PATIENT
  Sex: Male
  Weight: 85 kg

DRUGS (8)
  1. TMC114 [Suspect]
     Route: 048
  2. TMC114 [Suspect]
     Indication: HIV INFECTION
     Route: 048
  3. RITONAVIR [Suspect]
     Indication: HIV INFECTION
     Route: 048
  4. TENOFOVIR [Suspect]
     Indication: HIV INFECTION
     Route: 048
  5. LAMIVUDINE [Concomitant]
     Indication: HIV INFECTION
     Route: 048
  6. ASCORBIC ACID [Concomitant]
     Indication: NUTRITIONAL SUPPORT
     Dosage: 1000
     Route: 048
  7. CLOTRIMAZOLE [Concomitant]
     Indication: ANTIFUNGAL PROPHYLAXIS
     Dosage: 400/80 X 2
     Route: 048
  8. VITAMIN B COMPLEX CAP [Concomitant]
     Route: 065

REACTIONS (2)
  - HEPATITIS [None]
  - HEPATOTOXICITY [None]
